FAERS Safety Report 6443195-0 (Version None)
Quarter: 2009Q4

REPORT INFORMATION
  Report Type: 
  Country: None (occurrence: None)
  Receive Date: 20091117
  Receipt Date: 20091112
  Transmission Date: 20100525
  Serious: Yes (Hospitalization)
  Sender: FDA-Public Use
  Company Number: US-ELI_LILLY_AND_COMPANY-US200910004596

PATIENT
  Age: 63 Year
  Sex: Female

DRUGS (4)
  1. HUMALOG [Suspect]
     Indication: DIABETES MELLITUS
     Dosage: 15 U, UNK
  2. HUMALOG [Suspect]
  3. LIPITOR [Concomitant]
  4. LANTUS [Concomitant]
     Dosage: 70 U, EACH EVENING

REACTIONS (8)
  - APHASIA [None]
  - CEREBRAL ARTERY OCCLUSION [None]
  - CEREBROVASCULAR ACCIDENT [None]
  - DYSGRAPHIA [None]
  - GASTROENTERITIS VIRAL [None]
  - MALAISE [None]
  - READING DISORDER [None]
  - VISUAL ACUITY REDUCED [None]
